FAERS Safety Report 7469231-0 (Version None)
Quarter: 2011Q2

REPORT INFORMATION
  Report Type: 
  Country: None (occurrence: None)
  Receive Date: 20110510
  Receipt Date: 20110505
  Transmission Date: 20111010
  Serious: Yes (Hospitalization)
  Sender: FDA-Public Use
  Company Number: US-B.I. PHARMACEUTICALS,INC./RIDGEFIELD-2011-BP-12438BP

PATIENT
  Sex: Female

DRUGS (14)
  1. ALPRAZOLAM XR [Concomitant]
     Indication: ANXIETY
     Dosage: 2 MG
     Route: 048
     Dates: start: 20060101
  2. B12-VITAMIN [Concomitant]
     Indication: ROUTINE HEALTH MAINTENANCE
     Route: 048
     Dates: start: 20010101
  3. LEXAPRO [Concomitant]
     Indication: DEPRESSION
     Dosage: 20 MG
     Route: 048
     Dates: start: 20060101
  4. SINGULAIR [Concomitant]
     Indication: MULTIPLE ALLERGIES
     Dosage: 10 MG
     Route: 048
     Dates: start: 20040101
  5. SEROQUEL [Concomitant]
     Indication: MOOD ALTERED
     Dosage: 100 MG
     Route: 048
     Dates: start: 20060101
  6. CENTRUM SILVER [Concomitant]
     Indication: ROUTINE HEALTH MAINTENANCE
     Route: 048
     Dates: start: 20010101
  7. VITAMIN E [Concomitant]
     Indication: ROUTINE HEALTH MAINTENANCE
     Route: 048
     Dates: start: 20010101
  8. SPIRIVA [Suspect]
     Indication: MULTIPLE ALLERGIES
     Dosage: 18 MCG
     Route: 055
     Dates: start: 20060101
  9. BUMETANIDE [Concomitant]
     Indication: OEDEMA
     Route: 048
     Dates: start: 20060101
  10. FEXOFENADINE [Concomitant]
     Indication: MULTIPLE ALLERGIES
     Dosage: 180 MG
     Route: 048
     Dates: start: 20101201
  11. VITAMIN C [Concomitant]
     Indication: ROUTINE HEALTH MAINTENANCE
     Route: 048
     Dates: start: 20010101
  12. MUCINEX [Concomitant]
     Indication: MULTIPLE ALLERGIES
     Dosage: 600 MG
     Route: 048
     Dates: start: 20110201
  13. CALTRATE 600 + D [Concomitant]
     Indication: ROUTINE HEALTH MAINTENANCE
     Route: 048
     Dates: start: 20100101
  14. PROBIOTIC [Concomitant]
     Indication: ROUTINE HEALTH MAINTENANCE
     Route: 048
     Dates: start: 20100101

REACTIONS (6)
  - CERVICAL SPINAL STENOSIS [None]
  - MYOCARDIAL INFARCTION [None]
  - BLOOD CHOLESTEROL INCREASED [None]
  - GENITAL HERPES [None]
  - PULMONARY EMBOLISM [None]
  - ARTHRITIS [None]
